FAERS Safety Report 9904653 (Version 1)
Quarter: 2014Q1

REPORT INFORMATION
  Report Type: Report from Study
  Country: US (occurrence: US)
  Receive Date: 20140218
  Receipt Date: 20140218
  Transmission Date: 20141002
  Serious: Yes (Other)
  Sender: FDA-Public Use
  Company Number: US-PFIZER INC-2014040276

PATIENT
  Age: 65 Year
  Sex: Female

DRUGS (1)
  1. GEMCITABINE HYDROCHLORIDE [Suspect]
     Indication: SARCOMA
     Dosage: 13.7 G/M2 (2 OUT OF EVERY 3 WEEKS CUMULATIVE DOSE)

REACTIONS (1)
  - Thrombotic microangiopathy [Unknown]
